FAERS Safety Report 11230023 (Version 2)
Quarter: 2015Q3

REPORT INFORMATION
  Report Type: Spontaneous
  Country: US (occurrence: US)
  Receive Date: 20150701
  Receipt Date: 20150709
  Transmission Date: 20151125
  Serious: Yes (Hospitalization, Other)
  Sender: FDA-Public Use
  Company Number: US-UCBSA-2015019704

PATIENT
  Sex: Male
  Weight: 91 kg

DRUGS (4)
  1. PROGRAF [Concomitant]
     Active Substance: TACROLIMUS\TACROLIMUS ANHYDROUS
     Indication: TRANSPLANT REJECTION
     Dosage: UNK
  2. KEPPRA [Suspect]
     Active Substance: LEVETIRACETAM
     Indication: SEIZURE
     Dosage: 500 MG, 2X/DAY (BID)
     Route: 048
     Dates: start: 2007
  3. CELLCEPT [Concomitant]
     Active Substance: MYCOPHENOLATE MOFETIL\MYCOPHENOLATE MOFETIL HYDROCHLORIDE
     Indication: TRANSPLANT REJECTION
     Dosage: UNK
  4. DEPAKOTE [Concomitant]
     Active Substance: DIVALPROEX SODIUM
     Indication: SEIZURE
     Dosage: 500 MG, 2X/DAY (BID)
     Route: 048
     Dates: start: 2007

REACTIONS (2)
  - Generalised tonic-clonic seizure [Recovered/Resolved]
  - Back injury [Recovering/Resolving]

NARRATIVE: CASE EVENT DATE: 2007
